FAERS Safety Report 17376796 (Version 1)
Quarter: 2020Q1

REPORT INFORMATION
  Report Type: Spontaneous
  Country: US (occurrence: US)
  Receive Date: 20200122
  Receipt Date: 20200122
  Transmission Date: 20200409
  Serious: No
  Sender: FDA-Public Use
  Company Number: None

PATIENT
  Age: 58 Year
  Sex: Female
  Weight: 104.33 kg

DRUGS (5)
  1. GLYBURIDE. [Concomitant]
     Active Substance: GLYBURIDE
  2. OMEPRAZOLE. [Concomitant]
     Active Substance: OMEPRAZOLE
  3. METFORMIN HCL [Concomitant]
     Active Substance: METFORMIN HYDROCHLORIDE
  4. VENLAFAXINE ER [Concomitant]
     Active Substance: VENLAFAXINE HYDROCHLORIDE
  5. INVOKANA [Suspect]
     Active Substance: CANAGLIFLOZIN

REACTIONS (13)
  - Confusional state [None]
  - Vulvovaginal pruritus [None]
  - Urinary tract infection [None]
  - Somnolence [None]
  - Dizziness [None]
  - Nightmare [None]
  - Fatigue [None]
  - Chapped lips [None]
  - Headache [None]
  - Thirst [None]
  - Pollakiuria [None]
  - Balance disorder [None]
  - Fungal infection [None]

NARRATIVE: CASE EVENT DATE: 20200118
